FAERS Safety Report 4359500-5 (Version None)
Quarter: 2004Q2

REPORT INFORMATION
  Report Type: 
  Country: None (occurrence: None)
  Receive Date: 20040518
  Receipt Date: 20030722
  Transmission Date: 20050107
  Serious: No
  Sender: FDA-Public Use
  Company Number: US-BRISTOL-MYERS SQUIBB COMPANY-12332888

PATIENT
  Age: 37 Year
  Sex: Female
  Weight: 59 kg

DRUGS (3)
  1. MYCOLOG-II [Suspect]
     Indication: VAGINAL MYCOSIS
     Dosage: DOSAGE: TWICE DAILY 4-5 DAYS AT A TIME FOR THE PAST ^COUPLE OF YEARS^
     Route: 061
  2. PROGESTERONE [Concomitant]
     Dates: start: 20030711
  3. VITAMIN [Concomitant]
     Dates: start: 20030711

REACTIONS (2)
  - BLOOD FOLLICLE STIMULATING HORMONE INCREASED [None]
  - PREGNANCY [None]
